FAERS Safety Report 10073934 (Version 1)
Quarter: 2014Q2

REPORT INFORMATION
  Report Type: Spontaneous
  Country: US (occurrence: US)
  Receive Date: 20140411
  Receipt Date: 20140411
  Transmission Date: 20141212
  Serious: No
  Sender: FDA-Public Use
  Company Number: US-SANOFI-AVENTIS-2013SA039225

PATIENT
  Age: 51 Year
  Sex: Female

DRUGS (1)
  1. ALLEGRA-D, 24 HR [Suspect]
     Indication: HYPERSENSITIVITY
     Dosage: DOSE: 180 MG/240 MG ?FREQUENCY: ONE DOSE ONLY
     Route: 048
     Dates: start: 20130331

REACTIONS (6)
  - Rash erythematous [Not Recovered/Not Resolved]
  - Vomiting [Not Recovered/Not Resolved]
  - Throat irritation [Not Recovered/Not Resolved]
  - Cough [Not Recovered/Not Resolved]
  - Dyspnoea [Not Recovered/Not Resolved]
  - Rash pruritic [Not Recovered/Not Resolved]
